FAERS Safety Report 10407236 (Version 1)
Quarter: 2014Q3

REPORT INFORMATION
  Report Type: Spontaneous
  Country: PL (occurrence: PL)
  Receive Date: 20140825
  Receipt Date: 20140825
  Transmission Date: 20150326
  Serious: Yes (Hospitalization)
  Sender: FDA-Public Use
  Company Number: PL-TEVA-503107ISR

PATIENT
  Age: 4 Year
  Sex: Male
  Weight: 20 kg

DRUGS (1)
  1. CECLOR [Suspect]
     Active Substance: CEFACLOR
     Indication: PHARYNGITIS
     Dosage: 400 MILLIGRAM DAILY;
     Route: 048
     Dates: start: 20140717, end: 20140723

REACTIONS (3)
  - Urticaria [Recovered/Resolved]
  - Joint swelling [Recovered/Resolved]
  - Arthralgia [Recovered/Resolved]

NARRATIVE: CASE EVENT DATE: 20140720
